FAERS Safety Report 10052593 (Version 2)
Quarter: 2015Q1

REPORT INFORMATION
  Report Type: Spontaneous
  Country: US (occurrence: None)
  Receive Date: 20140331
  Receipt Date: 20150112
  Transmission Date: 20150720
  Serious: Yes (Hospitalization, Other)
  Sender: FDA-Public Use
  Company Number: UTC-046278

PATIENT
  Age: 66 Year
  Sex: Female
  Weight: 72.6 kg

DRUGS (3)
  1. ADCIRCA (TADALAFIL) (UNKNOWN) [Concomitant]
  2. REMODULIN [Suspect]
     Active Substance: TREPROSTINIL
     Indication: COR PULMONALE CHRONIC
     Dosage: 0.025 UG/KG, CONTINUING, SUBCUTANEOUS
     Route: 058
     Dates: start: 20090513
  3. TRACLEER (BOSENTAN) (UNKNOWN) [Concomitant]

REACTIONS (6)
  - Epistaxis [None]
  - Gastroenteritis viral [None]
  - Arteriovenous malformation [None]
  - Diarrhoea [None]
  - Syncope [None]
  - Haematemesis [None]

NARRATIVE: CASE EVENT DATE: 201403
